FAERS Safety Report 6961702-6 (Version None)
Quarter: 2010Q3

REPORT INFORMATION
  Report Type: 
  Country: None (occurrence: None)
  Receive Date: 20100901
  Receipt Date: 20100818
  Transmission Date: 20110219
  Serious: Yes (Life-Threatening, Other)
  Sender: FDA-Public Use
  Company Number: VE-PFIZER INC-2010109660

PATIENT
  Age: 63 Year
  Sex: Female

DRUGS (2)
  1. TAFIL [Suspect]
     Indication: INSOMNIA
     Dosage: 1 MG, 1X/DAY
     Route: 048
     Dates: start: 20050101, end: 20100701
  2. ALPRAZOLAM [Concomitant]
     Indication: INSOMNIA
     Dosage: 0.5 MG, 1X/DAY
     Route: 048
     Dates: start: 20100701

REACTIONS (5)
  - ANXIETY [None]
  - DEPRESSION [None]
  - HYPERTENSION [None]
  - INSOMNIA [None]
  - WITHDRAWAL SYNDROME [None]
